FAERS Safety Report 12883341 (Version 3)
Quarter: 2016Q4

REPORT INFORMATION
  Report Type: Spontaneous
  Country: JP (occurrence: JP)
  Receive Date: 20161025
  Receipt Date: 20161216
  Transmission Date: 20170207
  Serious: Yes (Hospitalization, Other)
  Sender: FDA-Public Use
  Company Number: JP-BAUSCH-BL-2016-025811

PATIENT
  Age: 80 Year
  Sex: Male

DRUGS (2)
  1. FLUOROURACIL. [Suspect]
     Active Substance: FLUOROURACIL
     Indication: OESOPHAGEAL SQUAMOUS CELL CARCINOMA STAGE IV
     Route: 065
  2. CISPLATIN. [Suspect]
     Active Substance: CISPLATIN
     Indication: OESOPHAGEAL SQUAMOUS CELL CARCINOMA STAGE IV
     Route: 065

REACTIONS (5)
  - Diverticular perforation [Recovering/Resolving]
  - Febrile neutropenia [Unknown]
  - Peritoneal abscess [Recovering/Resolving]
  - Diverticulum intestinal [Recovering/Resolving]
  - Mesenteric vascular insufficiency [Recovering/Resolving]
